FAERS Safety Report 4908938-3 (Version None)
Quarter: 2006Q1

REPORT INFORMATION
  Report Type: 
  Country: None (occurrence: None)
  Receive Date: 20060209
  Receipt Date: 20060203
  Transmission Date: 20060701
  Serious: Yes (Other)
  Sender: FDA-Public Use
  Company Number: 2005BI019334

PATIENT
  Age: 63 Year
  Sex: Female
  Weight: 71.6683 kg

DRUGS (5)
  1. AVONEX [Suspect]
     Indication: MULTIPLE SCLEROSIS
     Dosage: 30 UG;QW;IM
     Route: 030
     Dates: start: 19980101
  2. AVONEX [Suspect]
     Indication: MULTIPLE SCLEROSIS
     Dosage: 30 UG;QW;IM
     Route: 030
     Dates: end: 20050901
  3. ASPIRIN [Concomitant]
  4. MULTI-VITAMIN [Concomitant]
  5. OSCAL [Concomitant]

REACTIONS (8)
  - GASTROOESOPHAGEAL REFLUX DISEASE [None]
  - HYPERTENSION [None]
  - METASTASES TO LYMPH NODES [None]
  - MUSCLE SPASMS [None]
  - NEOPLASM MALIGNANT [None]
  - NERVOUSNESS [None]
  - OVARIAN CANCER [None]
  - URINARY INCONTINENCE [None]
